FAERS Safety Report 5022233-6 (Version None)
Quarter: 2006Q2

REPORT INFORMATION
  Report Type: 
  Country: None (occurrence: None)
  Receive Date: 20060605
  Receipt Date: 20060530
  Transmission Date: 20061013
  Serious: Yes (Other)
  Sender: FDA-Public Use
  Company Number: 2006061735

PATIENT
  Age: 57 Year
  Sex: Male
  Weight: 92 kg

DRUGS (2)
  1. LYRICA [Suspect]
     Indication: BACK PAIN
     Dosage: 150 MG (75 MG, 2 IN 1 D), ORAL
     Route: 048
  2. POLAMIDON (METHADONE HYDROCHLORIDE) [Concomitant]

REACTIONS (4)
  - ANXIETY DISORDER [None]
  - EPILEPSY [None]
  - HALLUCINATION [None]
  - MUSCULOSKELETAL STIFFNESS [None]
